FAERS Safety Report 23386574 (Version 1)
Quarter: 2024Q1

REPORT INFORMATION
  Report Type: Spontaneous
  Country: CH (occurrence: CH)
  Receive Date: 20240110
  Receipt Date: 20240110
  Transmission Date: 20240410
  Serious: Yes (Death, Hospitalization)
  Sender: FDA-Public Use
  Company Number: None

PATIENT
  Age: 57 Year
  Weight: 86.5 kg

DRUGS (7)
  1. CAPECITABINE [Suspect]
     Active Substance: CAPECITABINE
     Indication: Adenocarcinoma of colon
     Dosage: TIME INTERVAL: CYCLICAL: 3500MG P.O. (Q3W, 2 WEEKS INCOME, 1 WEEK BREAK) ; CYCLICAL
     Route: 048
     Dates: start: 20230626, end: 20230919
  2. OXALIPLATIN [Concomitant]
     Active Substance: OXALIPLATIN
     Indication: Adenocarcinoma of colon
     Dosage: TIME INTERVAL: CYCLICAL: CYCLICAL
     Route: 042
     Dates: start: 20230102, end: 20230605
  3. MOVICOL [Concomitant]
     Active Substance: POLYETHYLENE GLYCOL 3350\POTASSIUM CHLORIDE\SODIUM BICARBONATE\SODIUM CHLORIDE
     Indication: Constipation
     Dosage: TIME INTERVAL: AS NECESSARY: 1 SACHET BEI BEDARF ; AS NECESSARY
     Route: 048
  4. FLUOROURACIL [Concomitant]
     Active Substance: FLUOROURACIL
     Indication: Adenocarcinoma of colon
     Dosage: TIME INTERVAL: CYCLICAL: CYCLICAL
     Route: 042
     Dates: start: 20230102, end: 20230605
  5. LEUCOVORIN [Concomitant]
     Active Substance: LEUCOVORIN\LEUCOVORIN CALCIUM
     Indication: Adenocarcinoma of colon
     Dosage: TIME INTERVAL: CYCLICAL: CYCLICAL
     Route: 042
     Dates: start: 20230102, end: 20230605
  6. CLEMASTINE [Concomitant]
     Active Substance: CLEMASTINE
     Indication: Allergy prophylaxis
     Dosage: TIME INTERVAL: CYCLICAL: 2MG I.V. ALLE 3 WOCHEN ; CYCLICAL
     Route: 042
     Dates: start: 20230626, end: 20230905
  7. ZIRABEV [Suspect]
     Active Substance: BEVACIZUMAB-BVZR
     Indication: Adenocarcinoma of colon
     Dosage: TIME INTERVAL: CYCLICAL
     Route: 042
     Dates: start: 20230102, end: 20230905

REACTIONS (1)
  - Intestinal perforation [Fatal]

NARRATIVE: CASE EVENT DATE: 20230922
